FAERS Safety Report 19597449 (Version 1)
Quarter: 2021Q3

REPORT INFORMATION
  Report Type: Spontaneous
  Country: US (occurrence: US)
  Receive Date: 20210721
  Receipt Date: 20210721
  Transmission Date: 20211014
  Serious: Yes (Other)
  Sender: FDA-Public Use
  Company Number: None

PATIENT
  Age: 67 Year
  Sex: Female
  Weight: 79.38 kg

DRUGS (18)
  1. VITAMIN C [Concomitant]
     Active Substance: ASCORBIC ACID
  2. PROLIA [Suspect]
     Active Substance: DENOSUMAB
     Indication: OSTEOPOROSIS
     Dosage: ?          QUANTITY:1 DF DOSAGE FORM;?
     Route: 058
     Dates: start: 20210311, end: 20210325
  3. LEVOTHYROXINE. [Concomitant]
     Active Substance: LEVOTHYROXINE
  4. AMLODIPINE [Concomitant]
     Active Substance: AMLODIPINE BESYLATE
  5. ZOLPIDEM [Concomitant]
     Active Substance: ZOLPIDEM TARTRATE
  6. HYDROMORPHONE [Concomitant]
     Active Substance: HYDROMORPHONE
  7. IRON [Concomitant]
     Active Substance: IRON
  8. VITAMIN D [Concomitant]
     Active Substance: VITAMIN D NOS
  9. ESTRODIOL [Concomitant]
     Active Substance: ESTRADIOL
  10. GABAPENTIN. [Concomitant]
     Active Substance: GABAPENTIN
  11. MULTI VITAMIN [Concomitant]
     Active Substance: VITAMINS
  12. POTASSIUM [Concomitant]
     Active Substance: POTASSIUM
  13. LISINOPRIL. [Concomitant]
     Active Substance: LISINOPRIL
  14. VITAMINS [Concomitant]
     Active Substance: VITAMINS
  15. VITAMIN E [Concomitant]
     Active Substance: .ALPHA.-TOCOPHEROL
  16. MAGNESIUM [Concomitant]
     Active Substance: MAGNESIUM
  17. DULOXETINE. [Concomitant]
     Active Substance: DULOXETINE
  18. MORPHINE [Concomitant]
     Active Substance: MORPHINE

REACTIONS (2)
  - Incorrect product administration duration [None]
  - Wrong schedule [None]

NARRATIVE: CASE EVENT DATE: 20210311
